FAERS Safety Report 15741327 (Version 2)
Quarter: 2018Q4

REPORT INFORMATION
  Report Type: Spontaneous
  Country: US (occurrence: US)
  Receive Date: 20181219
  Receipt Date: 20181222
  Transmission Date: 20190205
  Serious: Yes (Hospitalization, Other)
  Sender: FDA-Public Use
  Company Number: US-009507513-1812USA007181

PATIENT
  Age: 69 Year
  Sex: Male

DRUGS (3)
  1. KEYTRUDA [Suspect]
     Active Substance: PEMBROLIZUMAB
     Indication: NON-SMALL CELL LUNG CANCER
     Dosage: 200 MILLIGRAM
     Route: 042
     Dates: start: 20171109, end: 20171109
  2. KEYTRUDA [Suspect]
     Active Substance: PEMBROLIZUMAB
     Dosage: UNK
     Dates: start: 20171204, end: 20171204
  3. KEYTRUDA [Suspect]
     Active Substance: PEMBROLIZUMAB
     Dosage: UNK
     Dates: start: 20171226, end: 20171226

REACTIONS (36)
  - Chest discomfort [Unknown]
  - Increased viscosity of bronchial secretion [Unknown]
  - Injury [Unknown]
  - Weight decreased [Unknown]
  - Pericardial effusion [Unknown]
  - Heart injury [Unknown]
  - Sputum retention [Unknown]
  - Sputum abnormal [Unknown]
  - Haematuria [Unknown]
  - Traumatic lung injury [Unknown]
  - Fatigue [Unknown]
  - Dyspnoea [Unknown]
  - Depressed mood [Unknown]
  - Asthenia [Unknown]
  - Presyncope [Unknown]
  - Dyspnoea [Unknown]
  - Malignant neoplasm progression [Unknown]
  - Gait inability [Unknown]
  - Heart rate irregular [Unknown]
  - Feeling abnormal [Unknown]
  - Interstitial lung disease [Unknown]
  - Pneumothorax [Unknown]
  - Pleural effusion [Unknown]
  - Suffocation feeling [Unknown]
  - Pallor [Unknown]
  - Dyspnoea [Unknown]
  - Sputum discoloured [Unknown]
  - Anxiety [Unknown]
  - Atelectasis [Unknown]
  - Oedema peripheral [Unknown]
  - Depressed mood [Unknown]
  - Pyrexia [Recovered/Resolved]
  - Rash [Unknown]
  - Haemoptysis [Unknown]
  - General physical condition decreased [Unknown]
  - Muscle atrophy [Unknown]

NARRATIVE: CASE EVENT DATE: 2017
